FAERS Safety Report 7859805-7 (Version None)
Quarter: 2011Q4

REPORT INFORMATION
  Report Type: 
  Country: None (occurrence: None)
  Receive Date: 20111027
  Receipt Date: 20111024
  Transmission Date: 20120403
  Serious: Yes (Hospitalization)
  Sender: FDA-Public Use
  Company Number: DE-PFIZER INC-2011225189

PATIENT
  Age: 75 Year
  Sex: Female

DRUGS (7)
  1. TORSEMIDE [Concomitant]
     Dosage: 10 MG, 1X/DAY
  2. METOCLOPRAMIDE HYDROCHLORIDE [Concomitant]
     Dosage: UNK GTT, AS NEEDED
  3. PANTOPRAZOLE SODIUM [Concomitant]
     Dosage: 40 MG, 1X/DAY
  4. SUNITINIB MALATE [Suspect]
     Indication: METASTATIC RENAL CELL CARCINOMA
     Dosage: 50 MG/DAY, THEN 2 WEEKS PAUSE
     Route: 048
     Dates: start: 20110829, end: 20110101
  5. MOVIPREP [Concomitant]
     Dosage: AS NEEDED
  6. AMLODIPINE BESILATE [Concomitant]
     Dosage: 5 MG, 1X/DAY
  7. BISOPROLOL [Concomitant]
     Dosage: 2.5 MG, 2X/DAY

REACTIONS (1)
  - GENERAL PHYSICAL HEALTH DETERIORATION [None]
